FAERS Safety Report 8393362-4 (Version None)
Quarter: 2012Q2

REPORT INFORMATION
  Report Type: 
  Country: None (occurrence: None)
  Receive Date: 20120529
  Receipt Date: 20120521
  Transmission Date: 20120825
  Serious: Yes (Other)
  Sender: FDA-Public Use
  Company Number: US-JNJFOC-20101002827

PATIENT
  Sex: Female
  Weight: 77.11 kg

DRUGS (7)
  1. LEVAQUIN [Suspect]
     Indication: SINUSITIS
     Route: 048
     Dates: start: 20101005, end: 20101007
  2. PREDNISONE [Concomitant]
     Route: 048
     Dates: start: 20101001
  3. CEFODIZIME DISODIUM [Concomitant]
     Route: 065
  4. PREDNISONE [Concomitant]
     Indication: EUSTACHIAN TUBE DISORDER
     Route: 048
     Dates: start: 20100101
  5. EFFEXOR [Concomitant]
     Indication: DEPRESSION
     Route: 048
     Dates: start: 20091201, end: 20100901
  6. PENICILLIN [Concomitant]
     Route: 065
  7. ANTIBIOTICS NOS [Concomitant]
     Route: 065

REACTIONS (3)
  - EAR PAIN [None]
  - NAIL DISCOLOURATION [None]
  - SKIN DISCOLOURATION [None]
